FAERS Safety Report 8621906-3 (Version None)
Quarter: 2012Q3

REPORT INFORMATION
  Report Type: 
  Country: None (occurrence: None)
  Receive Date: 20120822
  Receipt Date: 20120822
  Transmission Date: 20120928
  Serious: No
  Sender: FDA-Public Use
  Company Number: None

PATIENT
  Sex: Male

DRUGS (1)
  1. VELCADE [Suspect]
     Indication: MULTIPLE MYELOMA
     Dosage: IV
     Route: 042
     Dates: start: 20111001, end: 20120221

REACTIONS (4)
  - VISUAL ACUITY REDUCED [None]
  - CONSTIPATION [None]
  - DIARRHOEA [None]
  - NEUROPATHY PERIPHERAL [None]
